FAERS Safety Report 18599806 (Version 1)
Quarter: 2020Q4

REPORT INFORMATION
  Report Type: Spontaneous
  Country: US (occurrence: US)
  Receive Date: 20201210
  Receipt Date: 20201210
  Transmission Date: 20210114
  Serious: No
  Sender: FDA-Public Use
  Company Number: US-PFIZER INC-2020483597

PATIENT
  Age: 60 Year
  Sex: Female

DRUGS (3)
  1. NORVASC [Suspect]
     Active Substance: AMLODIPINE BESYLATE
     Dosage: UNK
  2. LENVIMA [Concomitant]
     Active Substance: LENVATINIB
     Indication: SALIVARY GLAND CANCER
     Dosage: 20 MG, DAILY
     Route: 048
     Dates: start: 20200728
  3. VALSARTAN. [Suspect]
     Active Substance: VALSARTAN
     Dosage: UNK

REACTIONS (1)
  - Feeling abnormal [Unknown]
